FAERS Safety Report 15443234 (Version 1)
Quarter: 2018Q4

REPORT INFORMATION
  Report Type: Spontaneous
  Country: ES (occurrence: ES)
  Receive Date: 20180928
  Receipt Date: 20180928
  Transmission Date: 20190204
  Serious: Yes (Hospitalization, Other)
  Sender: FDA-Public Use
  Company Number: ES-BRISTOL-MYERS SQUIBB COMPANY-BMS-2018-088128

PATIENT
  Age: 67 Year
  Sex: Female

DRUGS (3)
  1. IDARUBICINA /00830301/ [Suspect]
     Active Substance: IDARUBICIN
     Indication: ACUTE MYELOID LEUKAEMIA
     Dosage: 19.44 MG, UNK
     Route: 042
     Dates: start: 20171107, end: 20171109
  2. HYDROXYUREA. [Suspect]
     Active Substance: HYDROXYUREA
     Indication: ACUTE MYELOID LEUKAEMIA
     Dosage: 100 MG, Q8H
     Route: 048
     Dates: start: 20171031, end: 20171106
  3. CITARABINA [Suspect]
     Active Substance: CYTARABINE
     Indication: ACUTE MYELOID LEUKAEMIA
     Dosage: 324 MG, UNK
     Route: 042
     Dates: start: 20171107, end: 20171112

REACTIONS (1)
  - Hepatitis [Recovered/Resolved]

NARRATIVE: CASE EVENT DATE: 20171110
